FAERS Safety Report 13989184 (Version 2)
Quarter: 2018Q3

REPORT INFORMATION
  Report Type: Spontaneous
  Country: FR (occurrence: FR)
  Receive Date: 20170920
  Receipt Date: 20180702
  Transmission Date: 20181010
  Serious: Yes (Hospitalization)
  Sender: FDA-Public Use
  Company Number: FR-ACCORD-058721

PATIENT
  Age: 77 Year
  Sex: Male
  Weight: 60 kg

DRUGS (6)
  1. SIMVASTATIN. [Concomitant]
     Active Substance: SIMVASTATIN
     Route: 048
  2. LOPRESSOR [Concomitant]
     Active Substance: METOPROLOL TARTRATE
     Route: 048
  3. FLUOROURACIL ACCORD [Suspect]
     Active Substance: FLUOROURACIL
     Indication: CARCINOID TUMOUR OF THE CAECUM
     Dosage: AT THE POSOLOGY OF 2400 MG/M2 AND DOSE NOT CHANGED
     Route: 041
     Dates: start: 20170613, end: 20170718
  4. OXALIPLATIN ACCORD [Suspect]
     Active Substance: OXALIPLATIN
     Indication: CARCINOID TUMOUR OF THE CAECUM
     Route: 041
     Dates: start: 20170613
  5. AVASTIN [Suspect]
     Active Substance: BEVACIZUMAB
     Indication: CARCINOID TUMOUR OF THE CAECUM
     Dosage: STRENGTH: 25 MG/ML
     Route: 041
     Dates: start: 20170613, end: 20170828
  6. FOLINIC ACID [Suspect]
     Active Substance: LEUCOVORIN
     Indication: CARCINOID TUMOUR OF THE CAECUM
     Dates: start: 20170613

REACTIONS (3)
  - Off label use [Unknown]
  - Pulmonary embolism [Recovering/Resolving]
  - General physical health deterioration [Recovering/Resolving]

NARRATIVE: CASE EVENT DATE: 20170810
